FAERS Safety Report 25106922 (Version 1)
Quarter: 2025Q1

REPORT INFORMATION
  Report Type: Spontaneous
  Country: US (occurrence: US)
  Receive Date: 20250321
  Receipt Date: 20250321
  Transmission Date: 20250408
  Serious: Yes (Hospitalization, Other)
  Sender: BRISTOL-MYERS SQUIBB COMPANY
  Company Number: US-BRISTOL-MYERS SQUIBB COMPANY-2025-038488

PATIENT
  Age: 70 Year
  Sex: Female
  Weight: 63.96 kg

DRUGS (17)
  1. POMALYST [Suspect]
     Active Substance: POMALIDOMIDE
     Indication: Plasma cell myeloma
     Route: 048
  2. TRESIBA [Concomitant]
     Active Substance: INSULIN DEGLUDEC
  3. DEXAMETHASONE [Concomitant]
     Active Substance: DEXAMETHASONE
     Route: 048
  4. GLUCAGON [Concomitant]
     Active Substance: GLUCAGON
  5. ATORVASTATIN [Concomitant]
     Active Substance: ATORVASTATIN
  6. VASCEPA [Concomitant]
     Active Substance: ICOSAPENT ETHYL
  7. AMLODIPINE BESYLATE [Concomitant]
     Active Substance: AMLODIPINE BESYLATE
  8. ALLOPURINOL [Concomitant]
     Active Substance: ALLOPURINOL
     Route: 048
  9. CYCLOBENZAPRINE HYDROCHLORIDE [Concomitant]
     Active Substance: CYCLOBENZAPRINE HYDROCHLORIDE
  10. FUROSEMIDE [Concomitant]
     Active Substance: FUROSEMIDE
  11. FIASP [Concomitant]
     Active Substance: INSULIN ASPART
  12. OMEPRAZOLE DELAYED RELEASE [OMEPRAZOLE] [Concomitant]
  13. ONDANSETRON [Concomitant]
     Active Substance: ONDANSETRON
  14. POTASSIUM CHLORIDE [Concomitant]
     Active Substance: POTASSIUM CHLORIDE
  15. OZEMPIC [Concomitant]
     Active Substance: SEMAGLUTIDE
  16. TRAMADOL HCL [Concomitant]
     Active Substance: TRAMADOL HYDROCHLORIDE
  17. VALACYCLOVIR HYDROCHLORIDE [Concomitant]
     Active Substance: VALACYCLOVIR HYDROCHLORIDE

REACTIONS (2)
  - Pulmonary embolism [Recovered/Resolved]
  - Staphylococcal infection [Unknown]

NARRATIVE: CASE EVENT DATE: 20250101
